FAERS Safety Report 7272463-8 (Version None)
Quarter: 2011Q1

REPORT INFORMATION
  Report Type: 
  Country: None (occurrence: None)
  Receive Date: 20110203
  Receipt Date: 20110127
  Transmission Date: 20110831
  Serious: Yes (Other)
  Sender: FDA-Public Use
  Company Number: BR-ROCHE-718004

PATIENT
  Sex: Female
  Weight: 70 kg

DRUGS (6)
  1. INSULIN [Concomitant]
     Dosage: DOSE: 30ML, 20ML, 10ML.
  2. MICARDIS [Concomitant]
     Indication: HYPERTENSION
     Dosage: TAKEN WHEN NECESSARY.
  3. RIBAVIRIN [Concomitant]
  4. AMLODIPINE [Concomitant]
     Indication: HYPERTENSION
  5. PURAN T4 [Concomitant]
  6. PEGINTERFERON ALFA-2A [Suspect]
     Indication: HEPATITIS C
     Dosage: FORM: SYRINGE.
     Route: 058
     Dates: start: 20100426

REACTIONS (7)
  - COLITIS [None]
  - EPISTAXIS [None]
  - DIARRHOEA [None]
  - ALOPECIA [None]
  - ABDOMINAL PAIN [None]
  - ANAL HAEMORRHAGE [None]
  - ASTHENIA [None]
